FAERS Safety Report 20044995 (Version 1)
Quarter: 2021Q4

REPORT INFORMATION
  Report Type: Spontaneous
  Country: US (occurrence: US)
  Receive Date: 20211108
  Receipt Date: 20211108
  Transmission Date: 20220303
  Serious: Yes (Other)
  Sender: FDA-Public Use
  Company Number: US-LUPIN PHARMACEUTICALS INC.-2021-21623

PATIENT
  Age: 32 Year
  Sex: Female

DRUGS (2)
  1. AZITHROMYCIN [Suspect]
     Active Substance: AZITHROMYCIN
     Indication: Premature rupture of membranes
     Dosage: UNK
     Route: 065
  2. AMPICILLIN [Suspect]
     Active Substance: AMPICILLIN
     Indication: Premature rupture of membranes
     Dosage: UNK
     Route: 065

REACTIONS (6)
  - Thrombocytopenia [Unknown]
  - Premature labour [Unknown]
  - Premature delivery [Unknown]
  - Exposure during pregnancy [Unknown]
  - Hypertension [Unknown]
  - Hepatic enzyme increased [Unknown]
